FAERS Safety Report 15210966 (Version 1)
Quarter: 2018Q3

REPORT INFORMATION
  Report Type: Spontaneous
  Country: US (occurrence: US)
  Receive Date: 20180629
  Receipt Date: 20180629
  Transmission Date: 20181010
  Serious: Yes (Hospitalization, Other)
  Sender: FDA-Public Use
  Company Number: None

PATIENT
  Age: 66 Year
  Sex: Female
  Weight: 115 kg

DRUGS (3)
  1. SODIUM CHLORIDE. [Suspect]
     Active Substance: SODIUM CHLORIDE
     Route: 041
  2. TRASTUZUMAB. [Suspect]
     Active Substance: TRASTUZUMAB
     Route: 041
  3. PERTUZUMAB. [Suspect]
     Active Substance: PERTUZUMAB

REACTIONS (9)
  - Hypotension [None]
  - Infusion related reaction [None]
  - Abdominal pain [None]
  - Oxygen saturation decreased [None]
  - Dyspnoea [None]
  - Feeling cold [None]
  - Chest pain [None]
  - Back pain [None]
  - Chills [None]

NARRATIVE: CASE EVENT DATE: 20180629
